FAERS Safety Report 4804034-4 (Version None)
Quarter: 2005Q4

REPORT INFORMATION
  Report Type: 
  Country: None (occurrence: None)
  Receive Date: 20051018
  Receipt Date: 20051018
  Transmission Date: 20060501
  Serious: Yes (Other)
  Sender: FDA-Public Use
  Company Number: None

PATIENT
  Sex: Female
  Weight: 68.0396 kg

DRUGS (3)
  1. AREDIA [Suspect]
     Dosage: 90 MG QM IV
     Route: 042
     Dates: start: 20010329, end: 20020305
  2. AREDIA [Suspect]
     Dosage: 90 MG QM IV
     Route: 042
     Dates: start: 20021016, end: 20050730
  3. ZOMETA [Suspect]
     Dosage: 4 MG Q 3 WEEKS
     Dates: start: 20020327, end: 20020925

REACTIONS (3)
  - BONE DISORDER [None]
  - OSTEONECROSIS [None]
  - PAIN [None]
